FAERS Safety Report 6536427-1 (Version None)
Quarter: 2010Q1

REPORT INFORMATION
  Report Type: 
  Country: None (occurrence: None)
  Receive Date: 20100113
  Receipt Date: 20100105
  Transmission Date: 20100710
  Serious: Yes (Hospitalization, Congenital Anomaly, Other)
  Sender: FDA-Public Use
  Company Number: GXKR2010AU00495

PATIENT
  Sex: Male
  Weight: 2.9 kg

DRUGS (1)
  1. VALPROIC ACID (NGX) [Suspect]
     Dosage: MATERNAL DOSE: 1000 MG/DAY
     Route: 064

REACTIONS (4)
  - CONTINUOUS POSITIVE AIRWAY PRESSURE [None]
  - DRUG EXPOSURE DURING PREGNANCY [None]
  - DRUG WITHDRAWAL SYNDROME NEONATAL [None]
  - PULMONARY APLASIA [None]
